FAERS Safety Report 4668574-3 (Version None)
Quarter: 2005Q2

REPORT INFORMATION
  Report Type: 
  Country: None (occurrence: None)
  Receive Date: 20050518
  Receipt Date: 20050422
  Transmission Date: 20051028
  Serious: Yes (Hospitalization)
  Sender: FDA-Public Use
  Company Number: B0375199A

PATIENT
  Age: 25 Year
  Sex: Female
  Weight: 61.8706 kg

DRUGS (2)
  1. LAMICTAL [Suspect]
     Indication: EPILEPSY
     Dosage: ORAL
     Route: 048
     Dates: start: 20050223, end: 20050305
  2. VALPROATE SODIUM [Concomitant]

REACTIONS (14)
  - BLOOD CREATINE PHOSPHOKINASE INCREASED [None]
  - CONJUNCTIVITIS [None]
  - COUGH [None]
  - DIARRHOEA [None]
  - DRUG HYPERSENSITIVITY [None]
  - EYELID OEDEMA [None]
  - FIBRIN DEGRADATION PRODUCTS [None]
  - LYMPHADENOPATHY [None]
  - MYALGIA [None]
  - PROTHROMBIN LEVEL INCREASED [None]
  - PYREXIA [None]
  - RASH MACULAR [None]
  - THROMBOCYTOPENIA [None]
  - TRANSAMINASES INCREASED [None]
